FAERS Safety Report 14670428 (Version 1)
Quarter: 2018Q1

REPORT INFORMATION
  Report Type: Spontaneous
  Country: TW (occurrence: TW)
  Receive Date: 20180322
  Receipt Date: 20180322
  Transmission Date: 20180509
  Serious: Yes (Hospitalization)
  Sender: FDA-Public Use
  Company Number: PHHY2018TW048321

PATIENT
  Age: 51 Year
  Sex: Female
  Weight: 57 kg

DRUGS (1)
  1. TEGRETOL [Suspect]
     Active Substance: CARBAMAZEPINE
     Indication: DEPRESSION
     Dosage: 200 MG, BID
     Route: 048
     Dates: start: 20170410, end: 20170524

REACTIONS (10)
  - Lip swelling [Unknown]
  - Lip ulceration [Unknown]
  - Rash [Unknown]
  - Erythema [Unknown]
  - Mouth ulceration [Unknown]
  - Swelling face [Unknown]
  - Pruritus [Unknown]
  - Oropharyngeal pain [Unknown]
  - Blister [Unknown]
  - Stevens-Johnson syndrome [Unknown]
